FAERS Safety Report 23091967 (Version 1)
Quarter: 2023Q4

REPORT INFORMATION
  Report Type: Spontaneous
  Country: US (occurrence: US)
  Receive Date: 20231021
  Receipt Date: 20231021
  Transmission Date: 20240109
  Serious: Yes (Disabling)
  Sender: FDA-Public Use
  Company Number: US-ABBVIE-5458107

PATIENT
  Sex: Female

DRUGS (1)
  1. DURYSTA [Suspect]
     Active Substance: BIMATOPROST
     Indication: Glaucoma
     Dosage: TIME INTERVAL: AS NECESSARY
     Route: 047
     Dates: start: 202309, end: 202309

REACTIONS (3)
  - Visual acuity reduced [Not Recovered/Not Resolved]
  - Corneal oedema [Not Recovered/Not Resolved]
  - Iritis [Not Recovered/Not Resolved]

NARRATIVE: CASE EVENT DATE: 20230101
